FAERS Safety Report 6200852-9 (Version None)
Quarter: 2009Q2

REPORT INFORMATION
  Report Type: 
  Country: None (occurrence: None)
  Receive Date: 20090523
  Receipt Date: 20081007
  Transmission Date: 20091009
  Serious: No
  Sender: FDA-Public Use
  Company Number: US-ALEXION-A200800262

PATIENT
  Sex: Male

DRUGS (1)
  1. SOLIRIS [Suspect]
     Dosage: EVERY OTHER TUESDAY
     Route: 042
     Dates: start: 20080311

REACTIONS (2)
  - FATIGUE [None]
  - NASOPHARYNGITIS [None]
